FAERS Safety Report 18897933 (Version 1)
Quarter: 2021Q1

REPORT INFORMATION
  Report Type: Spontaneous
  Country: US (occurrence: US)
  Receive Date: 20210216
  Receipt Date: 20210216
  Transmission Date: 20210420
  Serious: No
  Sender: FDA-Public Use
  Company Number: US-STRIDES ARCOLAB LIMITED-2021SP000722

PATIENT
  Age: 32 Year
  Sex: Female

DRUGS (10)
  1. MAGNESIUM OXIDE. [Suspect]
     Active Substance: MAGNESIUM OXIDE
     Dosage: DOSE INCREASED T 800 MILLIGRAM, BID
     Route: 048
  2. MAGNESIUM OXIDE. [Suspect]
     Active Substance: MAGNESIUM OXIDE
     Dosage: ORAL MAGNESIUM SUPPLEMENTATION
     Route: 048
  3. MAGNESIUM OXIDE. [Suspect]
     Active Substance: MAGNESIUM OXIDE
     Dosage: 3200 MILLIGRAM
     Route: 065
  4. MAGNESIUM OXIDE. [Suspect]
     Active Substance: MAGNESIUM OXIDE
     Indication: GITELMAN^S SYNDROME
     Dosage: 400 MG DAILY
     Route: 048
  5. AMILORIDE [Suspect]
     Active Substance: AMILORIDE
     Indication: GITELMAN^S SYNDROME
     Dosage: 10 MILLIGRAM PER DAY
     Route: 048
  6. POTASSIUM CHLORIDE. [Suspect]
     Active Substance: POTASSIUM CHLORIDE
     Dosage: 160 MILLIEQUIVALENT
     Route: 065
  7. AMILORIDE [Suspect]
     Active Substance: AMILORIDE
     Dosage: 10 MILLIGRAM, BID DAILY
     Route: 065
  8. POTASSIUM CHLORIDE. [Suspect]
     Active Substance: POTASSIUM CHLORIDE
     Dosage: DOSE INCREASED TO 40 MILLIGRAM TID
     Route: 065
  9. POTASSIUM CHLORIDE. [Suspect]
     Active Substance: POTASSIUM CHLORIDE
     Indication: GITELMAN^S SYNDROME
     Dosage: 60 MILLIEQUIVALENT DAILY
     Route: 065
  10. MAGNESIUM OXIDE. [Suspect]
     Active Substance: MAGNESIUM OXIDE
     Dosage: IV MAGNESIUM SUPPLEMENTATION
     Route: 042

REACTIONS (1)
  - Maternal exposure during pregnancy [Unknown]
